FAERS Safety Report 11555546 (Version 2)
Quarter: 2015Q4

REPORT INFORMATION
  Report Type: Spontaneous
  Country: US (occurrence: US)
  Receive Date: 20150925
  Receipt Date: 20151008
  Transmission Date: 20160304
  Serious: Yes (Death, Other)
  Sender: FDA-Public Use
  Company Number: US-GILEAD-2015-0173267

PATIENT
  Age: 63 Year
  Sex: Male

DRUGS (34)
  1. TAMSULOSIN [Concomitant]
     Active Substance: TAMSULOSIN
  2. ALLOPURINOL. [Concomitant]
     Active Substance: ALLOPURINOL
  3. DIOVAN [Concomitant]
     Active Substance: VALSARTAN
  4. HARVONI [Suspect]
     Active Substance: LEDIPASVIR\SOFOSBUVIR
     Indication: HEPATITIS C
     Dosage: UNK
     Route: 065
  5. TIZANIDINE. [Concomitant]
     Active Substance: TIZANIDINE
  6. FLUTICASONE [Concomitant]
     Active Substance: FLUTICASONE\FLUTICASONE PROPIONATE
  7. HYDROCODONE [Concomitant]
     Active Substance: HYDROCODONE
  8. FENTANYL. [Concomitant]
     Active Substance: FENTANYL
  9. LEVOFLOXACIN. [Concomitant]
     Active Substance: LEVOFLOXACIN
  10. LINZESS [Concomitant]
     Active Substance: LINACLOTIDE
  11. VALSARTAN. [Concomitant]
     Active Substance: VALSARTAN
  12. WARFARIN [Concomitant]
     Active Substance: WARFARIN
  13. AMITRIPTYLINE [Concomitant]
     Active Substance: AMITRIPTYLINE
  14. TADALAFIL [Concomitant]
     Active Substance: TADALAFIL
  15. FLUCONAZOLE. [Concomitant]
     Active Substance: FLUCONAZOLE
  16. VOLTAREN [Concomitant]
     Active Substance: DICLOFENAC SODIUM
  17. ATENOLOL. [Concomitant]
     Active Substance: ATENOLOL
  18. MECLIZINE [Concomitant]
     Active Substance: MECLIZINE\MECLIZINE HYDROCHLORIDE
  19. DEXILANT [Concomitant]
     Active Substance: DEXLANSOPRAZOLE
  20. CHOLINE [Concomitant]
     Active Substance: CHOLINE
  21. GRALISE [Concomitant]
     Active Substance: GABAPENTIN
  22. AMLODIPINE [Concomitant]
     Active Substance: AMLODIPINE BESYLATE
  23. DIAZEPAM. [Concomitant]
     Active Substance: DIAZEPAM
  24. TRADJENTA [Concomitant]
     Active Substance: LINAGLIPTIN
  25. ROPINIROLE. [Concomitant]
     Active Substance: ROPINIROLE
  26. NITROSTAT [Concomitant]
     Active Substance: NITROGLYCERIN
  27. DULOXETINE. [Concomitant]
     Active Substance: DULOXETINE
  28. ATORVASTATIN [Concomitant]
     Active Substance: ATORVASTATIN
  29. LACTULOSE. [Concomitant]
     Active Substance: LACTULOSE
  30. LANTUS [Concomitant]
     Active Substance: INSULIN GLARGINE
  31. ZOLPIDEM [Concomitant]
     Active Substance: ZOLPIDEM\ZOLPIDEM TARTRATE
  32. TAMIFLU [Concomitant]
     Active Substance: OSELTAMIVIR PHOSPHATE
  33. CEFDINIR. [Concomitant]
     Active Substance: CEFDINIR
  34. SPIRIVA [Concomitant]
     Active Substance: TIOTROPIUM BROMIDE MONOHYDRATE

REACTIONS (1)
  - Cardiac arrest [Fatal]
